FAERS Safety Report 9701811 (Version 2)
Quarter: 2013Q4

REPORT INFORMATION
  Report Type: Spontaneous
  Country: US (occurrence: US)
  Receive Date: 20131121
  Receipt Date: 20131129
  Transmission Date: 20140711
  Serious: No
  Sender: FDA-Public Use
  Company Number: US-PFIZER INC-2013331535

PATIENT
  Age: 59 Year
  Sex: Female

DRUGS (1)
  1. XELJANZ [Suspect]
     Dosage: 10 MG, 2X/DAY (5 MG-2 PO BID)
     Route: 048
     Dates: start: 20131001, end: 20131101

REACTIONS (1)
  - Drug ineffective [Unknown]
